FAERS Safety Report 4421221-8 (Version None)
Quarter: 2004Q3

REPORT INFORMATION
  Report Type: 
  Country: None (occurrence: None)
  Receive Date: 20040809
  Receipt Date: 20040804
  Transmission Date: 20050211
  Serious: Yes (Hospitalization)
  Sender: FDA-Public Use
  Company Number: PHBS2004JP10416

PATIENT
  Age: 57 Year
  Sex: Male

DRUGS (1)
  1. LAMISIL [Suspect]
     Indication: NAIL TINEA
     Dosage: 125 MG/D
     Route: 048
     Dates: start: 20040710, end: 20040731

REACTIONS (3)
  - DRUG ERUPTION [None]
  - OEDEMA PERIPHERAL [None]
  - PYREXIA [None]
